FAERS Safety Report 9886970 (Version 2)
Quarter: 2014Q2

REPORT INFORMATION
  Report Type: Report from Study
  Country: GB (occurrence: GB)
  Receive Date: 20140211
  Receipt Date: 20140604
  Transmission Date: 20141212
  Serious: Yes (Death, Hospitalization)
  Sender: FDA-Public Use
  Company Number: GB-ROCHE-1346308

PATIENT
  Age: 79 Year
  Sex: Female

DRUGS (1)
  1. RANIBIZUMAB [Suspect]
     Indication: AGE-RELATED MACULAR DEGENERATION
     Dosage: LAST DOSE PRIOR TO SAE 17/DEC/2013
     Route: 050
     Dates: start: 20110210, end: 20131220

REACTIONS (5)
  - Multi-organ failure [Fatal]
  - Sepsis [Fatal]
  - Femoral neck fracture [Unknown]
  - Fall [Unknown]
  - Bronchitis bacterial [Not Recovered/Not Resolved]
